FAERS Safety Report 5594575-7 (Version None)
Quarter: 2008Q1

REPORT INFORMATION
  Report Type: 
  Country: None (occurrence: None)
  Receive Date: 20080115
  Receipt Date: 20080109
  Transmission Date: 20080703
  Serious: Yes (Hospitalization)
  Sender: FDA-Public Use
  Company Number: 2008SP000627

PATIENT
  Age: 10 Year
  Sex: Female

DRUGS (2)
  1. BETAMETHASONE [Suspect]
     Indication: DRUG USE FOR UNKNOWN INDICATION
  2. CLONAZEPAM [Suspect]
     Indication: DRUG USE FOR UNKNOWN INDICATION
     Dosage: 10 MG; ONCE; PO
     Route: 048
     Dates: start: 20070520, end: 20070520

REACTIONS (5)
  - BALANCE DISORDER [None]
  - DIPLOPIA [None]
  - DYSARTHRIA [None]
  - GAIT DISTURBANCE [None]
  - WRONG DRUG ADMINISTERED [None]
